FAERS Safety Report 6468185-3 (Version None)
Quarter: 2009Q4

REPORT INFORMATION
  Report Type: 
  Country: None (occurrence: None)
  Receive Date: 20091127
  Receipt Date: 20091119
  Transmission Date: 20100525
  Serious: Yes (Hospitalization)
  Sender: FDA-Public Use
  Company Number: 2009110042

PATIENT
  Age: 71 Year
  Sex: Female

DRUGS (2)
  1. DILUTOL (TORASEMIDE) [Suspect]
     Dosage: 10 MG (10 MG, 1 IN 1 D),ORAL
     Route: 048
     Dates: start: 20080101, end: 20090210
  2. ALDACTONE [Suspect]
     Dosage: 100 MG (100 MG, 1 IN 1 D), ORAL
     Route: 048
     Dates: start: 20080101, end: 20090210

REACTIONS (1)
  - RENAL FAILURE ACUTE [None]
